FAERS Safety Report 4360486-8 (Version None)
Quarter: 2004Q2

REPORT INFORMATION
  Report Type: 
  Country: None (occurrence: None)
  Receive Date: 20040514
  Receipt Date: 20040427
  Transmission Date: 20050107
  Serious: Yes (Hospitalization)
  Sender: FDA-Public Use
  Company Number: 196464

PATIENT
  Age: 32 Year
  Sex: Female

DRUGS (1)
  1. AVONEX [Suspect]
     Indication: MULTIPLE SCLEROSIS
     Dosage: 30 MCG QW IM
     Dates: start: 20030803

REACTIONS (6)
  - ASTHENIA [None]
  - DYSSTASIA [None]
  - DYSURIA [None]
  - INCISION SITE COMPLICATION [None]
  - MALAISE [None]
  - POSTOPERATIVE INFECTION [None]
